FAERS Safety Report 5241881-1 (Version None)
Quarter: 2007Q1

REPORT INFORMATION
  Report Type: 
  Country: None (occurrence: None)
  Receive Date: 20070220
  Receipt Date: 20070213
  Transmission Date: 20070707
  Serious: Yes (Hospitalization)
  Sender: FDA-Public Use
  Company Number: ES-PFIZER INC-2007012272

PATIENT
  Sex: Female
  Weight: 92 kg

DRUGS (5)
  1. GENOTROPIN [Suspect]
     Indication: HYPOPITUITARISM
     Route: 058
  2. DESMOPRESSIN [Concomitant]
     Route: 048
  3. ALDOSTERONE [Concomitant]
     Route: 048
  4. LEVOTHYROXINE SODIUM [Concomitant]
     Route: 048
  5. ESTRADIOL [Concomitant]

REACTIONS (1)
  - CHOLELITHIASIS [None]
